FAERS Safety Report 18402894 (Version 2)
Quarter: 2020Q4

REPORT INFORMATION
  Report Type: Spontaneous
  Country: BE (occurrence: BE)
  Receive Date: 20201019
  Receipt Date: 20201027
  Transmission Date: 20210114
  Serious: Yes (Life-Threatening)
  Sender: FDA-Public Use
  Company Number: BE-VIFOR (INTERNATIONAL) INC.-VIT-2020-10387

PATIENT
  Age: 60 Year
  Sex: Male
  Weight: 98 kg

DRUGS (5)
  1. VELTASSA [Suspect]
     Active Substance: PATIROMER
     Indication: PRODUCT USED FOR UNKNOWN INDICATION
     Dates: start: 20200729, end: 20200808
  2. NEBIVOLOL. [Concomitant]
     Active Substance: NEBIVOLOL
  3. TRULICITY [Concomitant]
     Active Substance: DULAGLUTIDE
     Route: 058
  4. LIXIANA [Concomitant]
     Active Substance: EDOXABAN TOSYLATE
  5. METFORMIN [Concomitant]
     Active Substance: METFORMIN HYDROCHLORIDE

REACTIONS (4)
  - Acute kidney injury [Recovered/Resolved]
  - Anuria [Recovered/Resolved]
  - Azotaemia [Recovered/Resolved]
  - Blood creatinine abnormal [Recovered/Resolved]

NARRATIVE: CASE EVENT DATE: 20200808
